FAERS Safety Report 14707928 (Version 1)
Quarter: 2018Q2

REPORT INFORMATION
  Report Type: Spontaneous
  Country: US (occurrence: US)
  Receive Date: 20180403
  Receipt Date: 20180403
  Transmission Date: 20180711
  Serious: No
  Sender: FDA-Public Use
  Company Number: US-PFIZER INC-2016362607

PATIENT
  Age: 66 Year
  Sex: Female

DRUGS (26)
  1. DILTIAZEM. [Concomitant]
     Active Substance: DILTIAZEM
     Indication: BLOOD PRESSURE ABNORMAL
  2. MIRALAX [Concomitant]
     Active Substance: POLYETHYLENE GLYCOL 3350
     Indication: ABDOMINAL DISCOMFORT
     Dosage: UNK, AS NEEDED
  3. CYMBALTA [Concomitant]
     Active Substance: DULOXETINE HYDROCHLORIDE
     Indication: OSTEOARTHRITIS
  4. LOVASTATIN. [Concomitant]
     Active Substance: LOVASTATIN
     Indication: BLOOD CHOLESTEROL ABNORMAL
     Dosage: 40 MG, DAILY
  5. CYCLOBENZAPRINE. [Concomitant]
     Active Substance: CYCLOBENZAPRINE
     Indication: MUSCLE RELAXANT THERAPY
     Dosage: 20 MG, DAILY (2 DAILY)
  6. TIKOSYN [Suspect]
     Active Substance: DOFETILIDE
     Dosage: 0.50 MG, DAILY
  7. FISH OIL [Concomitant]
     Active Substance: FISH OIL
     Dosage: 1400 MG, DAILY
  8. TRAMADOL HCL [Concomitant]
     Active Substance: TRAMADOL HYDROCHLORIDE
     Indication: PAIN
     Dosage: 50 MG, AS NEEDED
  9. TIKOSYN [Suspect]
     Active Substance: DOFETILIDE
     Dosage: 250 UG, 2X/DAY (TAKE 1 CAPSULE (250 MCG TOTAL) BY MOUTH EVERY 12(TWELVE) HOURS)
     Route: 048
     Dates: start: 20161213
  10. DILTIAZEM. [Concomitant]
     Active Substance: DILTIAZEM
     Indication: ATRIAL FIBRILLATION
     Dosage: 360 MG, DAILY
  11. FUROSEMIDE. [Concomitant]
     Active Substance: FUROSEMIDE
     Indication: FLUID RETENTION
     Dosage: 40 MG, DAILY
  12. PRESERVISION [Concomitant]
     Active Substance: MINERALS\VITAMINS
     Indication: MACULAR DEGENERATION
     Dosage: UNK, DAILY
  13. LUTIN [Concomitant]
     Indication: MACULAR DEGENERATION
     Dosage: 25 MG, DAILY
  14. CALCIUM [Concomitant]
     Active Substance: CALCIUM
     Indication: BONE DISORDER
     Dosage: 600 MG, DAILY
  15. METOPROLOL TARTRATE. [Concomitant]
     Active Substance: METOPROLOL TARTRATE
     Indication: HEART RATE INCREASED
  16. DIOVAN [Concomitant]
     Active Substance: VALSARTAN
     Indication: BLOOD PRESSURE ABNORMAL
     Dosage: 80 MG, DAILY
  17. CYMBALTA [Concomitant]
     Active Substance: DULOXETINE HYDROCHLORIDE
     Indication: MUSCULOSKELETAL PAIN
  18. GABAPENTIN. [Concomitant]
     Active Substance: GABAPENTIN
     Indication: FIBROMYALGIA
     Dosage: 1800 MG, DAILY (3 DAILY)
  19. TIKOSYN [Suspect]
     Active Substance: DOFETILIDE
     Indication: ATRIAL FIBRILLATION
     Dosage: 250 UG, 2X/DAY (TAKE 1 CAPSULE (250 MCG TOTAL) BY MOUTH EVERY 12(TWELVE) HOURS)
     Route: 048
     Dates: start: 20160720
  20. ANUSOL-HC SUPPOSITORY [Concomitant]
     Indication: HAEMORRHOIDS
     Dosage: 25 MG, AS NEEDED (1 EVERY 8 HOURS PRN)
  21. LEVOCETIRIZINE DI -HCL [Concomitant]
     Indication: HYPERSENSITIVITY
     Dosage: 5 MG, DAILY
  22. METOPROLOL TARTRATE. [Concomitant]
     Active Substance: METOPROLOL TARTRATE
     Indication: ATRIAL FIBRILLATION
     Dosage: UNK, DAILY (1/2; 50 MG, 2 DAILY)
  23. PRADAXA [Concomitant]
     Active Substance: DABIGATRAN ETEXILATE MESYLATE
     Indication: ANTICOAGULANT THERAPY
     Dosage: 300 MG, DAILY (2 DAILY)
  24. VITAMIN D3 [Concomitant]
     Active Substance: CHOLECALCIFEROL
     Indication: CALCIUM DEFICIENCY
     Dosage: 5000 IU, DAILY
  25. CYMBALTA [Concomitant]
     Active Substance: DULOXETINE HYDROCHLORIDE
     Indication: FIBROMYALGIA
     Dosage: 60 MG, DAILY
  26. BUSPIRONE [Concomitant]
     Active Substance: BUSPIRONE HYDROCHLORIDE
     Indication: ANXIETY
     Dosage: 20 MG, DAILY

REACTIONS (1)
  - Drug ineffective [Unknown]
